FAERS Safety Report 10885858 (Version 2)
Quarter: 2015Q2

REPORT INFORMATION
  Report Type: Report from Study
  Country: CA (occurrence: CA)
  Receive Date: 20150304
  Receipt Date: 20150429
  Transmission Date: 20150821
  Serious: Yes (Hospitalization, Other)
  Sender: FDA-Public Use
  Company Number: CA-JNJFOC-20150206412

PATIENT
  Age: 63 Year
  Sex: Male
  Weight: 127 kg

DRUGS (1)
  1. REMICADE [Suspect]
     Active Substance: INFLIXIMAB
     Indication: CROHN^S DISEASE
     Route: 042
     Dates: start: 20090812

REACTIONS (3)
  - Dyspnoea [Unknown]
  - Fluid imbalance [Unknown]
  - Influenza like illness [Unknown]

NARRATIVE: CASE EVENT DATE: 201501
